FAERS Safety Report 5279650-9 (Version None)
Quarter: 2007Q1

REPORT INFORMATION
  Report Type: 
  Country: None (occurrence: None)
  Receive Date: 20070323
  Receipt Date: 20070320
  Transmission Date: 20070707
  Serious: Yes (Death)
  Sender: FDA-Public Use
  Company Number: 154181USA

PATIENT
  Age: 1 Month
  Sex: Female

DRUGS (9)
  1. FLUOROURACIL [Suspect]
     Indication: COLORECTAL CANCER METASTATIC
     Dosage: 4440 MILLIGRAM, INTRAVENOUS (NOT OTHERWISE SPECIFIED)
     Route: 042
     Dates: start: 20070216, end: 20070216
  2. FOLINIC ACID [Suspect]
     Indication: COLORECTAL CANCER METASTATIC
     Dates: start: 20070213, end: 20070213
  3. OXALIPLATIN [Suspect]
     Indication: COLORECTAL CANCER METASTATIC
     Dosage: 157 MILLIGRAM, INTRAVENOUS (NOT OTHERWISE SPECIFIED)
     Route: 042
     Dates: start: 20070213, end: 20070213
  4. BEVACIZUMAB [Suspect]
     Indication: COLORECTAL CANCER METASTATIC
     Dosage: 445 MILLIGRAM, INTRAVENOUS (NOT OTHERWISE SPECIFIED)
     Route: 042
     Dates: start: 20070213, end: 20070213
  5. VALSARTAN [Concomitant]
  6. EZETIMIBE [Concomitant]
  7. MELOXICAM [Concomitant]
  8. FLUTICASONE PROPIONATE [Concomitant]
  9. ACETYLSALICYLIC ACID SRT [Concomitant]

REACTIONS (3)
  - MYOCARDIAL INFARCTION [None]
  - PULMONARY EMBOLISM [None]
  - SUDDEN CARDIAC DEATH [None]
